FAERS Safety Report 10548149 (Version 1)
Quarter: 2014Q4

REPORT INFORMATION
  Report Type: Spontaneous
  Country: US (occurrence: None)
  Receive Date: 20141027
  Receipt Date: 20141027
  Transmission Date: 20150529
  Serious: No
  Sender: FDA-Public Use
  Company Number: None

PATIENT
  Age: 58 Year
  Sex: Male
  Weight: 88.45 kg

DRUGS (1)
  1. MIXED AMPHETAMINE SALTS [Suspect]
     Active Substance: AMPHETAMINE ASPARTATE\AMPHETAMINE SULFATE\DEXTROAMPHETAMINE SACCHARATE\DEXTROAMPHETAMINE SULFATE
     Indication: ATTENTION DEFICIT/HYPERACTIVITY DISORDER
     Dosage: 1X PER DAY ONCE DAILY TAKEN BY MOUTH
     Route: 048
     Dates: start: 20141017, end: 20141024

REACTIONS (9)
  - Fatigue [None]
  - Dizziness [None]
  - Product physical issue [None]
  - Nausea [None]
  - Product substitution issue [None]
  - Headache [None]
  - Product formulation issue [None]
  - Drug ineffective [None]
  - Product packaging quantity issue [None]

NARRATIVE: CASE EVENT DATE: 20141023
